FAERS Safety Report 8205727-1 (Version None)
Quarter: 2012Q1

REPORT INFORMATION
  Report Type: 
  Country: None (occurrence: None)
  Receive Date: 20120309
  Receipt Date: 20120302
  Transmission Date: 20120608
  Serious: Yes (Other)
  Sender: FDA-Public Use
  Company Number: DKLU1077352

PATIENT
  Age: 12 Month
  Sex: Female

DRUGS (1)
  1. SABRIL [Suspect]
     Indication: INFANTILE SPASMS
     Dosage: 200 MILLIGRAM(S), 2 IN 1 D, ORAL
     Route: 048
     Dates: start: 20111201

REACTIONS (2)
  - LEUKAEMIA [None]
  - THROMBOCYTOPENIA [None]
